FAERS Safety Report 9707288 (Version 1)
Quarter: 2013Q4

REPORT INFORMATION
  Report Type: Spontaneous
  Country: US (occurrence: None)
  Receive Date: 20131122
  Receipt Date: 20131122
  Transmission Date: 20140711
  Serious: Yes (Other)
  Sender: FDA-Public Use
  Company Number: None

PATIENT
  Age: 40 Year
  Sex: Male
  Weight: 130.1 kg

DRUGS (9)
  1. ZYPREXA [Suspect]
     Dosage: 3 QHS
     Route: 048
     Dates: start: 20131029
  2. ZYPREXA [Suspect]
     Dosage: 3 QHS
     Route: 048
     Dates: end: 20131029
  3. OMEPRAZOLE [Concomitant]
  4. SYNTHROID [Concomitant]
  5. TOPAMAX [Concomitant]
  6. DEPAKOTE ER [Concomitant]
  7. NAPROXEN [Concomitant]
  8. MORPHINE SULFATE [Concomitant]
  9. CELEXA [Concomitant]

REACTIONS (2)
  - Somnambulism [None]
  - Product substitution issue [None]
